FAERS Safety Report 4473613-9 (Version None)
Quarter: 2004Q3

REPORT INFORMATION
  Report Type: 
  Country: None (occurrence: None)
  Receive Date: 20040907
  Receipt Date: 20040525
  Transmission Date: 20050211
  Serious: Yes (Other)
  Sender: FDA-Public Use
  Company Number: USA040566624

PATIENT

DRUGS (2)
  1. ALIMTA [Suspect]
     Indication: MESOTHELIOMA
  2. CISPLATIN [Concomitant]

REACTIONS (1)
  - NEPHROPATHY TOXIC [None]
